FAERS Safety Report 11935594 (Version 11)
Quarter: 2018Q2

REPORT INFORMATION
  Report Type: Spontaneous
  Country: US (occurrence: US)
  Receive Date: 20160121
  Receipt Date: 20180425
  Transmission Date: 20180711
  Serious: No
  Sender: FDA-Public Use
  Company Number: US-ACTELION PHARMACEUTICALS US, INC.-A-US2016-130055

PATIENT
  Age: 65 Year
  Sex: Female
  Weight: 55.78 kg

DRUGS (5)
  1. ELIQUIS [Concomitant]
     Active Substance: APIXABAN
  2. RIOCIGUAT. [Concomitant]
     Active Substance: RIOCIGUAT
  3. MEDROL [Concomitant]
     Active Substance: METHYLPREDNISOLONE
  4. OPSUMIT [Suspect]
     Active Substance: MACITENTAN
     Dosage: 10 MG, QD
     Route: 048
  5. OPSUMIT [Suspect]
     Active Substance: MACITENTAN
     Indication: PULMONARY HYPERTENSION
     Dosage: 10 MG, QD
     Route: 048
     Dates: start: 20150408

REACTIONS (28)
  - Dyspnoea [Unknown]
  - Feeling abnormal [Unknown]
  - Epistaxis [Unknown]
  - Laceration [Unknown]
  - Nasal dryness [Unknown]
  - Chest pain [Unknown]
  - Throat tightness [Unknown]
  - Fall [Unknown]
  - Panic attack [Unknown]
  - Hypoacusis [Unknown]
  - Iron deficiency [Unknown]
  - Fatigue [Unknown]
  - Syncope [Unknown]
  - Urinary tract infection [Unknown]
  - Sinus disorder [Unknown]
  - Diarrhoea [Unknown]
  - Arthritis [Unknown]
  - Nasopharyngitis [Unknown]
  - Nasal congestion [Unknown]
  - Rhinorrhoea [Unknown]
  - Dizziness [Unknown]
  - Hypersensitivity [Unknown]
  - Bronchitis [Unknown]
  - Eye injury [Unknown]
  - Anxiety [Unknown]
  - Oropharyngeal pain [Unknown]
  - Weight decreased [Unknown]
  - Cough [Unknown]
